FAERS Safety Report 25996705 (Version 1)
Quarter: 2025Q4

REPORT INFORMATION
  Report Type: Spontaneous
  Country: EU (occurrence: EU)
  Receive Date: 20251104
  Receipt Date: 20251104
  Transmission Date: 20260118
  Serious: Yes (Death, Life-Threatening, Hospitalization, Other)
  Sender: JOHNSON AND JOHNSON
  Company Number: EU-JNJFOC-20251141447

PATIENT
  Age: 44 Year
  Sex: Female
  Weight: 60 kg

DRUGS (24)
  1. YONDELIS [Suspect]
     Active Substance: TRABECTEDIN
     Indication: Leiomyosarcoma
     Dosage: 6TH CYCLE
     Route: 065
     Dates: start: 20250910
  2. CLARITHROMYCIN [Suspect]
     Active Substance: CLARITHROMYCIN
     Indication: Product used for unknown indication
     Route: 065
     Dates: start: 20250910, end: 20250910
  3. CLARITHROMYCIN [Suspect]
     Active Substance: CLARITHROMYCIN
     Dosage: ) 0-0-2
     Route: 065
     Dates: start: 20250909, end: 20250909
  4. CURCUMIN [Suspect]
     Active Substance: CURCUMIN
     Indication: Product used for unknown indication
     Dosage: 20-40 - 0 - 20
     Route: 065
     Dates: start: 20250910, end: 20250910
  5. CELECOXIB [Suspect]
     Active Substance: CELECOXIB
     Indication: Product used for unknown indication
     Route: 065
     Dates: start: 20250907, end: 20250909
  6. SILYBUM MARIANUM SEED EXTRACT [Suspect]
     Active Substance: SILYBUM MARIANUM SEED
     Indication: Product used for unknown indication
     Dosage: 0 - 0 - 2
     Route: 065
     Dates: start: 20250909, end: 20250909
  7. SILYBUM MARIANUM SEED EXTRACT [Suspect]
     Active Substance: SILYBUM MARIANUM SEED
     Dosage: 5 -0-5
     Route: 065
     Dates: start: 20250910, end: 20250910
  8. SILYBUM MARIANUM SEED EXTRACT [Suspect]
     Active Substance: SILYBUM MARIANUM SEED
     Dosage: 2X2
     Route: 065
     Dates: start: 20250911
  9. NEULASTA [Concomitant]
     Active Substance: PEGFILGRASTIM
     Indication: Product used for unknown indication
     Dates: start: 20250910
  10. PANACEO BASIC [Concomitant]
     Indication: Product used for unknown indication
     Dates: start: 20250910, end: 20250910
  11. DIETARY SUPPLEMENT [Concomitant]
     Active Substance: DIETARY SUPPLEMENT
     Indication: Product used for unknown indication
     Dates: start: 20250911
  12. LEVOTHYROXINE SODIUM [Concomitant]
     Active Substance: LEVOTHYROXINE SODIUM
     Indication: Product used for unknown indication
  13. ELIQUIS [Concomitant]
     Active Substance: APIXABAN
     Indication: Product used for unknown indication
  14. XGEVA [Concomitant]
     Active Substance: DENOSUMAB
     Indication: Product used for unknown indication
     Dates: start: 2023
  15. ZYPREXA [Concomitant]
     Active Substance: OLANZAPINE
     Indication: Product used for unknown indication
  16. ZOFRAN [Concomitant]
     Active Substance: ONDANSETRON HYDROCHLORIDE
     Indication: Product used for unknown indication
  17. METOCLOPRAMIDE HYDROCHLORIDE [Concomitant]
     Active Substance: METOCLOPRAMIDE HYDROCHLORIDE
     Indication: Product used for unknown indication
  18. NOVALGIN (METAMIZOLE SODIUM) [Concomitant]
     Active Substance: METAMIZOLE SODIUM
     Indication: Product used for unknown indication
  19. CALCIUM CARBONATE\CHOLECALCIFEROL [Concomitant]
     Active Substance: CALCIUM CARBONATE\CHOLECALCIFEROL
     Indication: Product used for unknown indication
  20. TIZANIDINE [Concomitant]
     Active Substance: TIZANIDINE
     Indication: Product used for unknown indication
  21. DEXIBUPROFEN [Concomitant]
     Active Substance: DEXIBUPROFEN
     Indication: Product used for unknown indication
  22. DARM FLUX [Concomitant]
     Indication: Product used for unknown indication
     Dates: start: 20250911
  23. CALCIUM CARBONATE [Concomitant]
     Active Substance: CALCIUM CARBONATE
     Indication: Product used for unknown indication
  24. CHOLECALCIFEROL [Concomitant]
     Active Substance: CHOLECALCIFEROL
     Indication: Product used for unknown indication

REACTIONS (29)
  - Multiple organ dysfunction syndrome [Fatal]
  - Labelled drug-drug interaction medication error [Fatal]
  - Product prescribing error [Fatal]
  - Transaminases increased [Not Recovered/Not Resolved]
  - Pancytopenia [Not Recovered/Not Resolved]
  - Acute respiratory distress syndrome [Not Recovered/Not Resolved]
  - Acute hepatic failure [Not Recovered/Not Resolved]
  - Ascites [Not Recovered/Not Resolved]
  - Pleural effusion [Not Recovered/Not Resolved]
  - Hypervolaemia [Not Recovered/Not Resolved]
  - Acute kidney injury [Not Recovered/Not Resolved]
  - Intussusception [Not Recovered/Not Resolved]
  - Mechanical ileus [Not Recovered/Not Resolved]
  - Jejunectomy [Recovered/Resolved]
  - Blood lactic acid increased [Not Recovered/Not Resolved]
  - Thrombosis [Recovered/Resolved]
  - Generalised oedema [Not Recovered/Not Resolved]
  - Anuria [Not Recovered/Not Resolved]
  - Blood bilirubin abnormal [Not Recovered/Not Resolved]
  - Suspected drug-induced liver injury [Not Recovered/Not Resolved]
  - Septic shock [Not Recovered/Not Resolved]
  - Vasoplegia syndrome [Not Recovered/Not Resolved]
  - Cardiomyopathy [Not Recovered/Not Resolved]
  - Azotaemia [Not Recovered/Not Resolved]
  - Labelled drug-drug interaction issue [Unknown]
  - Faecal vomiting [Not Recovered/Not Resolved]
  - Candida infection [Not Recovered/Not Resolved]
  - Citrobacter infection [Not Recovered/Not Resolved]
  - Inflammatory marker increased [Unknown]

NARRATIVE: CASE EVENT DATE: 20250916
